FAERS Safety Report 9756211 (Version 1)
Quarter: 2013Q4

REPORT INFORMATION
  Report Type: Spontaneous
  Country: US (occurrence: US)
  Receive Date: 20131213
  Receipt Date: 20131213
  Transmission Date: 20140711
  Serious: No
  Sender: FDA-Public Use
  Company Number: US-009507513-1312USA005139

PATIENT
  Age: 27 Year
  Sex: Female

DRUGS (5)
  1. CLARITIN-D-12 [Suspect]
     Indication: NASOPHARYNGITIS
     Route: 048
  2. CLARITIN-D-12 [Suspect]
     Indication: NASAL DISCOMFORT
  3. CLARITIN-D-12 [Suspect]
     Indication: SNEEZING
  4. CLARITIN-D-12 [Suspect]
     Indication: THROAT IRRITATION
  5. CLARITIN-D-12 [Suspect]
     Indication: RHINORRHOEA

REACTIONS (2)
  - Unevaluable event [Unknown]
  - Drug effect decreased [Unknown]
